FAERS Safety Report 10527558 (Version 1)
Quarter: 2014Q4

REPORT INFORMATION
  Report Type: Spontaneous
  Country: US (occurrence: None)
  Receive Date: 20141016
  Receipt Date: 20141016
  Transmission Date: 20150528
  Serious: Yes (Other)
  Sender: FDA-Public Use
  Company Number: None

PATIENT
  Age: 58 Year
  Sex: Female
  Weight: 72.58 kg

DRUGS (1)
  1. BETIMOL [Suspect]
     Active Substance: TIMOLOL
     Indication: GLAUCOMA
     Dosage: 1 DROP EACH EYE ONCE DAILY INTO THE EYE
     Route: 031
     Dates: start: 20140615, end: 20140715

REACTIONS (6)
  - Eyelid oedema [None]
  - Blepharospasm [None]
  - Corneal irritation [None]
  - Dry eye [None]
  - Eyelid exfoliation [None]
  - Vision blurred [None]

NARRATIVE: CASE EVENT DATE: 20140715
